FAERS Safety Report 9241557 (Version 3)
Quarter: 2013Q2

REPORT INFORMATION
  Report Type: Report from Study
  Country: US (occurrence: US)
  Receive Date: 20130419
  Receipt Date: 20130520
  Transmission Date: 20140414
  Serious: Yes (Hospitalization)
  Sender: FDA-Public Use
  Company Number: US-ALVOGEN-2013AL000200

PATIENT
  Age: 22 Year
  Sex: Female
  Weight: 86.8 kg

DRUGS (22)
  1. MACROBID [Suspect]
     Indication: MULTIPLE SCLEROSIS RELAPSE
     Dates: start: 20130318, end: 20130322
  2. MACROBID [Suspect]
     Indication: MULTIPLE SCLEROSIS
     Dates: start: 20130318, end: 20130322
  3. BLINDED [Suspect]
     Indication: MULTIPLE SCLEROSIS
     Route: 042
     Dates: start: 20120710, end: 20120710
  4. BLINDED [Suspect]
     Indication: MULTIPLE SCLEROSIS
     Route: 042
     Dates: start: 20120724, end: 20120724
  5. BLINDED [Suspect]
     Indication: MULTIPLE SCLEROSIS
     Route: 042
     Dates: start: 20121218, end: 20121218
  6. BLINDED [Suspect]
     Indication: MULTIPLE SCLEROSIS
     Route: 058
     Dates: start: 20120710
  7. ACETAMINOPHEN [Concomitant]
     Indication: PREMEDICATION
     Dates: start: 20120710
  8. ACETAMINOPHEN [Concomitant]
     Indication: PREMEDICATION
     Dates: start: 20120724
  9. ACETAMINOPHEN [Concomitant]
     Indication: PREMEDICATION
     Dates: start: 20121218
  10. METHYLPREDNISOLONE [Concomitant]
     Indication: PREMEDICATION
     Dates: start: 20120710, end: 20120710
  11. METHYLPREDNISOLONE [Concomitant]
     Indication: PREMEDICATION
     Dates: start: 20120724, end: 20120724
  12. METHYLPREDNISOLONE [Concomitant]
     Indication: PREMEDICATION
     Dates: start: 20121218, end: 20121218
  13. BENADRYL /00000402/ [Concomitant]
     Indication: PRODUCT USED FOR UNKNOWN INDICATION
     Dates: start: 20120710
  14. BENADRYL /00000402/ [Concomitant]
     Indication: PRODUCT USED FOR UNKNOWN INDICATION
     Dates: start: 20120724
  15. BENADRYL /00000402/ [Concomitant]
     Indication: PRODUCT USED FOR UNKNOWN INDICATION
     Dates: start: 20121218
  16. LEVETIRACETAM [Concomitant]
     Indication: PRODUCT USED FOR UNKNOWN INDICATION
     Dates: start: 2010
  17. CITALOPRAM [Concomitant]
     Indication: PRODUCT USED FOR UNKNOWN INDICATION
     Dates: start: 201203, end: 20121005
  18. CETIRIZINE [Concomitant]
     Indication: PRODUCT USED FOR UNKNOWN INDICATION
     Dates: start: 2000
  19. ADVIL /00109201/ [Concomitant]
     Indication: PRODUCT USED FOR UNKNOWN INDICATION
     Dates: start: 2008
  20. AMBIEN [Concomitant]
     Indication: PRODUCT USED FOR UNKNOWN INDICATION
     Dates: start: 201204
  21. ZOLOFT [Concomitant]
     Indication: PRODUCT USED FOR UNKNOWN INDICATION
     Dates: start: 20121005
  22. ETHINYL ESTRADIOL W/NORGESTREL [Concomitant]
     Indication: PRODUCT USED FOR UNKNOWN INDICATION
     Dates: start: 20121005

REACTIONS (2)
  - Pancreatitis [Recovering/Resolving]
  - Gastritis [Recovered/Resolved]
